FAERS Safety Report 4868749-4 (Version None)
Quarter: 2005Q4

REPORT INFORMATION
  Report Type: 
  Country: None (occurrence: None)
  Receive Date: 20051223
  Receipt Date: 20051214
  Transmission Date: 20060501
  Serious: Yes (Life-Threatening, Hospitalization)
  Sender: FDA-Public Use
  Company Number: 2005168015

PATIENT
  Age: 22 Year
  Sex: Female

DRUGS (5)
  1. DIFLUCAN [Suspect]
     Indication: ORAL CANDIDIASIS
     Dosage: ORAL
     Route: 048
     Dates: start: 20051107, end: 20051115
  2. TEGRETOL [Suspect]
     Indication: EPILEPSY
     Dosage: 600 MG DAILY ORAL
     Route: 048
     Dates: start: 20051107, end: 20051115
  3. CLOBAZAM (CLOBAZAM) [Concomitant]
  4. NEURONTIN [Concomitant]
  5. CARDENALE (PHENOBARBITAL) [Concomitant]

REACTIONS (12)
  - COAGULOPATHY [None]
  - HEPATIC FAILURE [None]
  - HYPOTENSION [None]
  - JAUNDICE [None]
  - NEUROLEPTIC MALIGNANT SYNDROME [None]
  - OLIGURIA [None]
  - PYREXIA [None]
  - RENAL FAILURE [None]
  - RHABDOMYOLYSIS [None]
  - SOMNOLENCE [None]
  - TRANSAMINASES INCREASED [None]
  - VOMITING [None]
